FAERS Safety Report 25673933 (Version 1)
Quarter: 2025Q3

REPORT INFORMATION
  Report Type: Report from Study
  Country: US (occurrence: US)
  Receive Date: 20250813
  Receipt Date: 20250813
  Transmission Date: 20251021
  Serious: No
  Sender: SUNOVION
  Company Number: US-SUMITOMO PHARMA SWITZERLAND GMBH-2025SPA008116

PATIENT
  Age: 62 Year
  Sex: Male

DRUGS (13)
  1. ORGOVYX [Suspect]
     Active Substance: RELUGOLIX
     Indication: Prostate cancer
     Route: 048
  2. ORGOVYX [Suspect]
     Active Substance: RELUGOLIX
     Route: 048
  3. CRESTOR [Concomitant]
     Active Substance: ROSUVASTATIN CALCIUM
  4. VITAMINS [Concomitant]
     Active Substance: VITAMINS
  5. ELIGARD [Concomitant]
     Active Substance: LEUPROLIDE ACETATE
  6. FARXIGA [Concomitant]
     Active Substance: DAPAGLIFLOZIN PROPANEDIOL
  7. JANUVIA [Concomitant]
     Active Substance: SITAGLIPTIN PHOSPHATE
  8. LOSARTAN [Concomitant]
     Active Substance: LOSARTAN
  9. METFORMIN [Concomitant]
     Active Substance: METFORMIN HYDROCHLORIDE
  10. MOTRIN IB [Concomitant]
     Active Substance: IBUPROFEN
  11. TRAMADOL [Concomitant]
     Active Substance: TRAMADOL
  12. ZOLOFT [Concomitant]
     Active Substance: SERTRALINE HYDROCHLORIDE
  13. ERLEADA [Concomitant]
     Active Substance: APALUTAMIDE

REACTIONS (2)
  - Hot flush [Unknown]
  - Therapy interrupted [Recovered/Resolved]
